FAERS Safety Report 10388857 (Version 1)
Quarter: 2014Q1

REPORT INFORMATION
  Report Type: Spontaneous
  Country: US (occurrence: None)
  Receive Date: 20140306
  Receipt Date: 20140306
  Transmission Date: 20141002
  Serious: Yes (Other)
  Sender: FDA-Public Use
  Company Number: 163-21880-13094554

PATIENT
  Age: 78 Year
  Sex: Female
  Weight: 61.24 kg

DRUGS (7)
  1. REVLIMID (LENALIDOMIDE) (10 MILLIGRAM, CAPSULES) [Suspect]
     Indication: 5Q MINUS SYNDROME
     Dosage: TEMPORARY INTERRUPTED
     Route: 048
     Dates: start: 20130911
  2. PREDNISONE [Concomitant]
  3. CALCIUM [Concomitant]
  4. VIT D (ERGOCALCIFEROL) [Concomitant]
  5. LEXAPRO (ESCITALOPRAM, OXALATE) [Concomitant]
  6. MULTI VITAMINS [Concomitant]
  7. PROCRIT (ERYTHROPOIETIN) [Concomitant]

REACTIONS (3)
  - Haemoglobin decreased [None]
  - Platelet count decreased [None]
  - White blood cell count decreased [None]
